FAERS Safety Report 9316173 (Version 1)
Quarter: 2013Q2

REPORT INFORMATION
  Report Type: Spontaneous
  Country: US (occurrence: US)
  Receive Date: 20130530
  Receipt Date: 20130530
  Transmission Date: 20140414
  Serious: Yes (Other)
  Sender: FDA-Public Use
  Company Number: US-PFIZER INC-2013163456

PATIENT
  Age: 54 Year
  Sex: Male
  Weight: 72.56 kg

DRUGS (6)
  1. LYRICA [Suspect]
     Indication: NEURALGIA
     Dosage: 75 MG, 2X/DAY
     Route: 048
     Dates: start: 201106
  2. LYRICA [Suspect]
     Indication: TENDONITIS
     Dosage: 150 MG, 2X/DAY
     Dates: start: 2011
  3. LYRICA [Suspect]
     Dosage: 100 MG, 2X/DAY
  4. LYRICA [Suspect]
     Dosage: 75 MG, 2X/DAY
  5. TRAMADOL HCL [Suspect]
     Dosage: UNK
  6. METANX [Concomitant]
     Dosage: UNK

REACTIONS (8)
  - Weight increased [Unknown]
  - Blood testosterone decreased [Unknown]
  - Vision blurred [Not Recovered/Not Resolved]
  - Tremor [Not Recovered/Not Resolved]
  - Mobility decreased [Unknown]
  - Lethargy [Not Recovered/Not Resolved]
  - Asthenia [Not Recovered/Not Resolved]
  - Agitation [Unknown]
